FAERS Safety Report 9126805 (Version 2)
Quarter: 2013Q2

REPORT INFORMATION
  Report Type: Spontaneous
  Country: US (occurrence: US)
  Receive Date: 20130122
  Receipt Date: 20130611
  Transmission Date: 20140414
  Serious: No
  Sender: FDA-Public Use
  Company Number: US-PFIZER INC-2013024157

PATIENT
  Age: 64 Year
  Sex: Male
  Weight: 58.96 kg

DRUGS (4)
  1. INLYTA [Suspect]
     Indication: RENAL CELL CARCINOMA STAGE IV
     Dosage: 5 MG, 2X/DAY
     Route: 048
     Dates: start: 20121227
  2. INLYTA [Suspect]
     Indication: RENAL CANCER
     Dosage: 3 MG, UNK
  3. INLYTA [Suspect]
     Indication: MALIGNANT URINARY TRACT NEOPLASM
  4. ZOCOR [Concomitant]
     Indication: HYPERTENSION
     Dosage: 12.5 MG, DAILY

REACTIONS (4)
  - Dizziness [Not Recovered/Not Resolved]
  - Muscular weakness [Not Recovered/Not Resolved]
  - Asthenia [Unknown]
  - Fatigue [Unknown]
